FAERS Safety Report 19120796 (Version 1)
Quarter: 2021Q2

REPORT INFORMATION
  Report Type: Spontaneous
  Country: US (occurrence: US)
  Receive Date: 20210410
  Receipt Date: 20210410
  Transmission Date: 20210717
  Serious: Yes (Other)
  Sender: FDA-Public Use
  Company Number: None

PATIENT
  Age: 51 Year
  Sex: Female
  Weight: 95.25 kg

DRUGS (6)
  1. CUCLOSPORINE [Concomitant]
  2. TOPEROMATE [Concomitant]
  3. EXHEDERIN [Concomitant]
  4. MOTRIN [Concomitant]
     Active Substance: IBUPROFEN
  5. SUNOSI [Suspect]
     Active Substance: SOLRIAMFETOL
  6. SYNTHROIDE [Concomitant]

REACTIONS (1)
  - Enteritis [None]

NARRATIVE: CASE EVENT DATE: 20210402
